FAERS Safety Report 8993290 (Version 1)
Quarter: 2013Q1

REPORT INFORMATION
  Report Type: Spontaneous
  Country: US (occurrence: US)
  Receive Date: 20130102
  Receipt Date: 20130102
  Transmission Date: 20140127
  Serious: No
  Sender: FDA-Public Use
  Company Number: US-TEVA-377748USA

PATIENT
  Sex: Male

DRUGS (3)
  1. QNASL [Suspect]
  2. SINGULAIR [Suspect]
  3. ADVAIR [Suspect]

REACTIONS (1)
  - Hallucination [Unknown]
